FAERS Safety Report 14075168 (Version 1)
Quarter: 2017Q4

REPORT INFORMATION
  Report Type: Spontaneous
  Country: US (occurrence: US)
  Receive Date: 20171010
  Receipt Date: 20171010
  Transmission Date: 20180321
  Serious: No
  Sender: FDA-Public Use
  Company Number: US-DRREDDYS-USA/USA/17/0086924

PATIENT

DRUGS (1)
  1. METOPROLOL SUCCINATE. [Suspect]
     Active Substance: METOPROLOL SUCCINATE
     Indication: PRODUCT USED FOR UNKNOWN INDICATION
     Route: 065

REACTIONS (9)
  - Chest discomfort [Unknown]
  - Dizziness [Unknown]
  - Nausea [Unknown]
  - Product quality issue [Unknown]
  - Anxiety [Unknown]
  - Heart rate irregular [Unknown]
  - Insomnia [Unknown]
  - Extrasystoles [Unknown]
  - Nervousness [Unknown]
